FAERS Safety Report 7770775-2 (Version None)
Quarter: 2011Q3

REPORT INFORMATION
  Report Type: 
  Country: None (occurrence: None)
  Receive Date: 20110922
  Receipt Date: 20100901
  Transmission Date: 20111222
  Serious: Yes (Hospitalization)
  Sender: FDA-Public Use
  Company Number: US-ASTRAZENECA-2010SE41296

PATIENT
  Age: 60 Year
  Sex: Male
  Weight: 93 kg

DRUGS (15)
  1. LASIX [Concomitant]
  2. POTASSIUM [Concomitant]
  3. DEPAKOTE [Concomitant]
  4. HYDROCODONE [Concomitant]
  5. SEROQUEL [Suspect]
     Indication: BIPOLAR DISORDER
     Route: 048
  6. ATIVAN [Concomitant]
  7. WARFARIN SODIUM [Concomitant]
  8. CARDIZEM [Concomitant]
  9. TRAVATAN [Concomitant]
  10. OMEPRAZOLE [Concomitant]
  11. ASPIRIN [Concomitant]
  12. FISH OIL [Concomitant]
  13. LEVOXYL [Concomitant]
  14. SIMVASTATIN [Concomitant]
  15. ISOSORBIDE DINITRATE [Concomitant]

REACTIONS (3)
  - SOMNOLENCE [None]
  - TACHYCARDIA [None]
  - INCORRECT DOSE ADMINISTERED [None]
